FAERS Safety Report 6638598-5 (Version None)
Quarter: 2010Q1

REPORT INFORMATION
  Report Type: 
  Country: None (occurrence: None)
  Receive Date: 20100301
  Receipt Date: 20090629
  Transmission Date: 20100710
  Serious: Yes (Hospitalization)
  Sender: FDA-Public Use
  Company Number: RB-17895-2009

PATIENT
  Age: 34 Year
  Sex: Male

DRUGS (2)
  1. SUBOXONE [Suspect]
     Indication: DRUG USE FOR UNKNOWN INDICATION
  2. LORTAB [Suspect]
     Indication: DRUG USE FOR UNKNOWN INDICATION

REACTIONS (6)
  - ARTHROPOD BITE [None]
  - DEPRESSION [None]
  - DRUG INTERACTION [None]
  - EYE INFECTION [None]
  - HEADACHE [None]
  - WITHDRAWAL SYNDROME [None]
